FAERS Safety Report 6860420-2 (Version None)
Quarter: 2010Q3

REPORT INFORMATION
  Report Type: 
  Country: None (occurrence: None)
  Receive Date: 20100720
  Receipt Date: 20100712
  Transmission Date: 20110219
  Serious: Yes (Life-Threatening, Hospitalization)
  Sender: FDA-Public Use
  Company Number: US-ROCHE-711523

PATIENT
  Sex: Male
  Weight: 102.1 kg

DRUGS (5)
  1. PEGASYS [Suspect]
     Indication: HEPATITIS C
     Route: 065
  2. PEGASYS [Suspect]
     Route: 065
  3. RIBAVIRIN [Suspect]
     Indication: HEPATITIS C
     Dosage: UNSPECIFIED HIGH DOSE
     Route: 065
  4. RIBAVIRIN [Suspect]
     Dosage: DOSE LOWERED
     Route: 065
  5. PROCRIT [Suspect]
     Route: 065

REACTIONS (3)
  - ANAEMIA [None]
  - CARDIOGENIC SHOCK [None]
  - MYOCARDIAL INFARCTION [None]
